FAERS Safety Report 13622710 (Version 1)
Quarter: 2017Q2

REPORT INFORMATION
  Report Type: Report from Study
  Country: EG (occurrence: EG)
  Receive Date: 20170607
  Receipt Date: 20170607
  Transmission Date: 20170830
  Serious: Yes (Hospitalization, Other)
  Sender: FDA-Public Use
  Company Number: EG-ELI_LILLY_AND_COMPANY-EG201703006177

PATIENT
  Age: 20 Year
  Sex: Male
  Weight: 53 kg

DRUGS (11)
  1. HUMALOG [Suspect]
     Active Substance: INSULIN LISPRO
     Dosage: 10 U, QD
     Route: 058
  2. ENSURE [Concomitant]
     Active Substance: AMINO ACIDS\DEXTROSE\ELECTROLYTES NOS\SOYBEAN OIL\VITAMINS
     Indication: MEDICAL DIET
     Dosage: UNK, UNKNOWN
     Route: 048
     Dates: start: 201612
  3. MILGA [Concomitant]
     Indication: MEDICAL DIET
     Dosage: UNK, QD
     Route: 048
     Dates: start: 201612
  4. INSULIN, LISPRO [Suspect]
     Active Substance: INSULIN LISPRO
     Dosage: 3 U, TID
     Route: 058
     Dates: start: 2016, end: 20170303
  5. HUMALOG [Suspect]
     Active Substance: INSULIN LISPRO
     Indication: DIABETES MELLITUS
     Dosage: 10 U, QD
     Route: 058
     Dates: start: 2016
  6. INSULIN, LISPRO [Suspect]
     Active Substance: INSULIN LISPRO
     Indication: DIABETES MELLITUS
     Dosage: 10 U, QD
     Route: 058
     Dates: start: 2016, end: 20170303
  7. HUMALOG [Suspect]
     Active Substance: INSULIN LISPRO
     Dosage: 3 IU, TID
     Route: 058
     Dates: end: 20170303
  8. GLUCOPHAGE [Concomitant]
     Active Substance: METFORMIN HYDROCHLORIDE
     Indication: DIABETES MELLITUS
     Dosage: 1 DF, QD
     Route: 048
     Dates: start: 201605
  9. HUMALOG [Suspect]
     Active Substance: INSULIN LISPRO
     Dosage: 20 IU, AFTER BREAKFAST
     Route: 058
     Dates: end: 20170303
  10. OMEGA 3                            /01334101/ [Suspect]
     Active Substance: OMEGA-3 FATTY ACIDS
     Indication: PRODUCT USED FOR UNKNOWN INDICATION
     Dosage: UNK, UNKNOWN
     Route: 065
  11. LANTUS [Concomitant]
     Active Substance: INSULIN GLARGINE
     Indication: DIABETES MELLITUS
     Dosage: UNK, UNKNOWN
     Route: 058
     Dates: end: 20170312

REACTIONS (10)
  - Hallucination [Unknown]
  - Weight decreased [Not Recovered/Not Resolved]
  - Loss of consciousness [Not Recovered/Not Resolved]
  - Vomiting [Unknown]
  - Hypoglycaemia [Not Recovered/Not Resolved]
  - Blood glucose decreased [Not Recovered/Not Resolved]
  - Hallucination [Unknown]
  - Hallucination [Unknown]
  - Intentional product misuse [Not Recovered/Not Resolved]
  - Hypoglycaemia [Unknown]

NARRATIVE: CASE EVENT DATE: 20161129
